FAERS Safety Report 9134369 (Version 2)
Quarter: 2013Q2

REPORT INFORMATION
  Report Type: Spontaneous
  Country: GB (occurrence: GB)
  Receive Date: 20130304
  Receipt Date: 20130528
  Transmission Date: 20140414
  Serious: Yes (Other)
  Sender: FDA-Public Use
  Company Number: GB-JNJFOC-20130214741

PATIENT
  Sex: Male

DRUGS (9)
  1. STELARA [Suspect]
     Indication: PRODUCT USED FOR UNKNOWN INDICATION
     Route: 058
  2. STELARA [Suspect]
     Indication: PRODUCT USED FOR UNKNOWN INDICATION
     Route: 058
     Dates: start: 20121128
  3. STELARA [Suspect]
     Indication: PRODUCT USED FOR UNKNOWN INDICATION
     Route: 058
     Dates: start: 201302
  4. METFORMIN [Concomitant]
     Dosage: X 2
     Route: 065
  5. ATENOLOL [Concomitant]
     Route: 065
  6. GLICLAZIDE [Concomitant]
     Route: 065
  7. LISINOPRIL [Concomitant]
     Dosage: AT NIGHT
     Route: 065
  8. ASPIRIN [Concomitant]
     Route: 065
  9. SIMVASTATIN [Concomitant]
     Route: 065

REACTIONS (1)
  - Skin lesion [Unknown]
